FAERS Safety Report 7729055-3 (Version None)
Quarter: 2011Q3

REPORT INFORMATION
  Report Type: 
  Country: None (occurrence: None)
  Receive Date: 20110831
  Receipt Date: 20110816
  Transmission Date: 20111222
  Serious: Yes (Death, Other)
  Sender: FDA-Public Use
  Company Number: JPI-P-016481

PATIENT
  Age: 50 Year
  Sex: Female

DRUGS (5)
  1. XYREM [Suspect]
     Indication: FIBROMYALGIA
     Dosage: 4.5 GM (2.25 GM, 2 IN 1 D), ORAL, (TITRATING DOSE), ORAL, 9 GM (4.5 GM, 2 IN 1 D), ORAL, (4.5 TO 4.2
     Route: 048
     Dates: start: 20050525
  2. XYREM [Suspect]
     Indication: FIBROMYALGIA
     Dosage: 4.5 GM (2.25 GM, 2 IN 1 D), ORAL, (TITRATING DOSE), ORAL, 9 GM (4.5 GM, 2 IN 1 D), ORAL, (4.5 TO 4.2
     Route: 048
     Dates: end: 20110713
  3. XYREM [Suspect]
     Indication: FIBROMYALGIA
     Dosage: 4.5 GM (2.25 GM, 2 IN 1 D), ORAL, (TITRATING DOSE), ORAL, 9 GM (4.5 GM, 2 IN 1 D), ORAL, (4.5 TO 4.2
     Route: 048
     Dates: start: 20041201
  4. OXYMORPHONE HYDROCHLORIDE [Concomitant]
  5. TIZANIDINE HCL [Concomitant]

REACTIONS (2)
  - MULTIPLE SCLEROSIS [None]
  - CONDITION AGGRAVATED [None]
